FAERS Safety Report 12522511 (Version 1)
Quarter: 2016Q3

REPORT INFORMATION
  Report Type: Spontaneous
  Country: US (occurrence: US)
  Receive Date: 20160701
  Receipt Date: 20160701
  Transmission Date: 20161109
  Serious: No
  Sender: FDA-Public Use
  Company Number: US-PFIZER INC-2016323080

PATIENT
  Age: 53 Year
  Sex: Female

DRUGS (4)
  1. IODINE. [Suspect]
     Active Substance: IODINE
     Dosage: UNK
  2. NEURONTIN [Suspect]
     Active Substance: GABAPENTIN
     Dosage: UNK
  3. CODEINE [Suspect]
     Active Substance: CODEINE
     Dosage: UNK
  4. PEPCID [Suspect]
     Active Substance: FAMOTIDINE
     Dosage: UNK

REACTIONS (1)
  - Drug hypersensitivity [Unknown]
